FAERS Safety Report 4816616-4 (Version None)
Quarter: 2005Q4

REPORT INFORMATION
  Report Type: 
  Country: None (occurrence: None)
  Receive Date: 20051028
  Receipt Date: 20051017
  Transmission Date: 20060501
  Serious: Yes (Hospitalization, Other)
  Sender: FDA-Public Use
  Company Number: SUSI-2005-00786

PATIENT
  Age: 46 Year
  Sex: Female
  Weight: 47.6 kg

DRUGS (5)
  1. ADDERALL XR 30 [Suspect]
     Indication: SLUGGISHNESS
     Dosage: 30 MG, 1X/DAY:QD, ORAL
     Route: 048
     Dates: start: 20050401, end: 20050701
  2. XANAX [Concomitant]
  3. NEURONTIN [Concomitant]
  4. PREMARIN (ESTROGENS CONJUGATED, MEDROGESTONE) [Concomitant]
  5. NIZORAL [Concomitant]

REACTIONS (9)
  - HALLUCINATION [None]
  - IMPRISONMENT [None]
  - LEGAL PROBLEM [None]
  - MALNUTRITION [None]
  - MUSCLE TWITCHING [None]
  - PARANOIA [None]
  - PRESCRIBED OVERDOSE [None]
  - PSYCHOTIC DISORDER [None]
  - WEIGHT DECREASED [None]
